FAERS Safety Report 14687247 (Version 1)
Quarter: 2018Q1

REPORT INFORMATION
  Report Type: Spontaneous
  Country: NL (occurrence: NL)
  Receive Date: 20180328
  Receipt Date: 20180328
  Transmission Date: 20180509
  Serious: Yes (Hospitalization)
  Sender: FDA-Public Use
  Company Number: NL-ORION CORPORATION ORION PHARMA-ENTC2018-0111

PATIENT
  Sex: Male

DRUGS (2)
  1. STALEVO [Suspect]
     Active Substance: CARBIDOPA\ENTACAPONE\LEVODOPA
     Route: 065
  2. LEVODOPA [Concomitant]
     Active Substance: LEVODOPA
     Route: 065

REACTIONS (7)
  - Gait disturbance [Unknown]
  - Dysstasia [Unknown]
  - Micturition urgency [Unknown]
  - Loss of personal independence in daily activities [Unknown]
  - Spinal disorder [Unknown]
  - Pain [Unknown]
  - Musculoskeletal stiffness [Unknown]

NARRATIVE: CASE EVENT DATE: 201705
